FAERS Safety Report 5906213-1 (Version None)
Quarter: 2008Q4

REPORT INFORMATION
  Report Type: 
  Country: None (occurrence: None)
  Receive Date: 20081002
  Receipt Date: 20080925
  Transmission Date: 20090506
  Serious: Yes (Hospitalization)
  Sender: FDA-Public Use
  Company Number: PHHO2008BR11632

PATIENT
  Sex: Male

DRUGS (10)
  1. CYCLOSPORINE [Suspect]
     Indication: RENAL TRANSPLANT
     Dosage: 200 MG, QD
     Route: 048
     Dates: start: 20070522
  2. PREDNISONE [Concomitant]
     Indication: RENAL TRANSPLANT
     Dosage: 5 MG
     Dates: start: 20071227
  3. CELLCEPT [Concomitant]
     Dosage: 1000MG
     Dates: start: 20070731
  4. ACETYLSALICYLIC ACID SRT [Concomitant]
     Dosage: UNK
     Dates: start: 20070522
  5. DOXAZOSIN MESYLATE [Concomitant]
     Dosage: UNK
     Dates: start: 20070528
  6. ENALAPRIL MALEATE [Concomitant]
     Dosage: UNK
     Dates: start: 20080324
  7. HYDROCHLOROTHIAZIDE [Concomitant]
     Dosage: UNK
     Dates: start: 20080220
  8. OMEPRAZOLE [Concomitant]
     Dosage: UNK
     Dates: start: 20070518
  9. SIMVASTATIN [Concomitant]
     Dosage: UNK
     Dates: start: 20070703
  10. BACTRIM [Concomitant]
     Dosage: UNK
     Dates: start: 20070521

REACTIONS (2)
  - CHOLECYSTECTOMY [None]
  - CHOLELITHIASIS [None]
